FAERS Safety Report 6859933-9 (Version None)
Quarter: 2010Q3

REPORT INFORMATION
  Report Type: 
  Country: None (occurrence: None)
  Receive Date: 20100720
  Receipt Date: 20100707
  Transmission Date: 20110219
  Serious: Yes (Other)
  Sender: FDA-Public Use
  Company Number: PHHY2010US41202

PATIENT
  Sex: Female

DRUGS (5)
  1. GLEEVEC [Suspect]
     Indication: CERVIX CARCINOMA
     Dosage: 400 MG, QD
     Route: 048
     Dates: start: 20090828, end: 20091030
  2. GLEEVEC [Suspect]
     Indication: ACUTE LYMPHOCYTIC LEUKAEMIA
     Dosage: UNK
     Dates: start: 20091105
  3. GLEEVEC [Suspect]
     Dosage: DOSE INCREASED
     Dates: start: 20091125
  4. GLEEVEC [Suspect]
     Dosage: 400 MG, QD
     Route: 048
     Dates: start: 20100120, end: 20100623
  5. SPRYCEL [Concomitant]
     Dosage: 100 MG, QD
     Route: 048
     Dates: start: 20100618

REACTIONS (3)
  - DRUG INEFFECTIVE [None]
  - GENE MUTATION IDENTIFICATION TEST POSITIVE [None]
  - STEM CELL TRANSPLANT [None]
